FAERS Safety Report 4376043-3 (Version None)
Quarter: 2004Q2

REPORT INFORMATION
  Report Type: 
  Country: None (occurrence: None)
  Receive Date: 20040609
  Receipt Date: 20040609
  Transmission Date: 20050107
  Serious: Yes (Hospitalization)
  Sender: FDA-Public Use
  Company Number: None

PATIENT
  Sex: Male
  Weight: 86 kg

DRUGS (8)
  1. DEXAMETHASONE [Suspect]
     Indication: MULTIPLE MYELOMA
     Dosage: 40 MG PO 4 DAYS ON 4 DAYS OFF
     Route: 048
  2. VANCOMYCIN [Concomitant]
  3. ASPIRIN [Concomitant]
  4. QUINAPRIL HCL [Concomitant]
  5. VERAPAMIL [Concomitant]
  6. ALLOPURINOL [Concomitant]
  7. SIMVASTATIN [Concomitant]
  8. HEPARIN [Concomitant]

REACTIONS (1)
  - BLOOD GLUCOSE INCREASED [None]
